FAERS Safety Report 5146083-5 (Version None)
Quarter: 2006Q4

REPORT INFORMATION
  Report Type: 
  Country: None (occurrence: None)
  Receive Date: 20061102
  Receipt Date: 20061023
  Transmission Date: 20070319
  Serious: Yes (Hospitalization)
  Sender: FDA-Public Use
  Company Number: 2006130498

PATIENT
  Age: 74 Year
  Sex: Female
  Weight: 54.7 kg

DRUGS (2)
  1. GENOTROPIN [Suspect]
     Indication: HYPOPITUITARISM
     Dosage: 0.1 MG (5.3 MG, DAILY)
     Dates: start: 20030620, end: 20061008
  2. GENOTROPIN [Suspect]
     Indication: HYPOPITUITARISM
     Dosage: 0.1 MG (5.3 MG, DAILY)
     Dates: start: 20061016

REACTIONS (4)
  - BLOOD GROWTH HORMONE ABNORMAL [None]
  - BLOOD PROLACTIN ABNORMAL [None]
  - DISEASE RECURRENCE [None]
  - PITUITARY TUMOUR BENIGN [None]
